FAERS Safety Report 8548358-6 (Version None)
Quarter: 2012Q3

REPORT INFORMATION
  Report Type: 
  Country: None (occurrence: None)
  Receive Date: 20120730
  Receipt Date: 20120720
  Transmission Date: 20120928
  Serious: Yes (Hospitalization, Other)
  Sender: FDA-Public Use
  Company Number: ZA-JNJFOC-20120710851

PATIENT
  Sex: Female

DRUGS (1)
  1. DURAGESIC-100 [Suspect]
     Indication: SCIATICA
     Route: 062

REACTIONS (2)
  - RESPIRATORY DEPRESSION [None]
  - WRONG TECHNIQUE IN DRUG USAGE PROCESS [None]
